FAERS Safety Report 22890438 (Version 3)
Quarter: 2023Q4

REPORT INFORMATION
  Report Type: Report from Study
  Country: US (occurrence: US)
  Receive Date: 20230831
  Receipt Date: 20231215
  Transmission Date: 20240110
  Serious: No
  Sender: FDA-Public Use
  Company Number: US-ACADIA PHARMACEUTICALS INC.-ACA-2023-PIM-003394

PATIENT
  Age: 79 Year
  Sex: Male

DRUGS (5)
  1. NUPLAZID [Suspect]
     Active Substance: PIMAVANSERIN TARTRATE
     Indication: Parkinson^s disease psychosis
     Dosage: 34 MILLIGRAM, QD
     Route: 048
     Dates: start: 202304
  2. CYMBALTA [Suspect]
     Active Substance: DULOXETINE HYDROCHLORIDE
  3. SEROQUEL [Suspect]
     Active Substance: QUETIAPINE FUMARATE
  4. SINEMET [Concomitant]
     Active Substance: CARBIDOPA\LEVODOPA
     Dosage: UNKNOWN
  5. SINEMET [Concomitant]
     Active Substance: CARBIDOPA\LEVODOPA
     Dosage: DOSE INCREASED

REACTIONS (9)
  - Abnormal behaviour [Unknown]
  - Obsessive-compulsive disorder [Unknown]
  - Anxiety [Unknown]
  - Delusion [Recovered/Resolved]
  - Movement disorder [Not Recovered/Not Resolved]
  - Freezing phenomenon [Unknown]
  - Hallucination [Unknown]
  - Confusional state [Unknown]
  - Confusional state [Not Recovered/Not Resolved]

NARRATIVE: CASE EVENT DATE: 20230701
